FAERS Safety Report 23992823 (Version 1)
Quarter: 2024Q2

REPORT INFORMATION
  Report Type: Other
  Country: US (occurrence: US)
  Receive Date: 20240620
  Receipt Date: 20240620
  Transmission Date: 20240716
  Serious: Yes (Death)
  Sender: FDA-Public Use
  Company Number: US-SERB S.A.S.-2158341

PATIENT
  Age: 39 Year
  Sex: Female

DRUGS (5)
  1. VISTOGARD [Suspect]
     Active Substance: URIDINE TRIACETATE
     Indication: Toxicity to various agents
     Route: 065
  2. VISTOGARD [Suspect]
     Active Substance: URIDINE TRIACETATE
     Indication: Chemotherapy toxicity attenuation
  3. VISTOGARD [Suspect]
     Active Substance: URIDINE TRIACETATE
     Indication: Palmar-plantar erythrodysaesthesia syndrome
  4. VISTOGARD [Suspect]
     Active Substance: URIDINE TRIACETATE
     Indication: Mucosal inflammation
  5. CAPECITABINE [Suspect]
     Active Substance: CAPECITABINE
     Route: 065

REACTIONS (2)
  - Death [Fatal]
  - No adverse event [Unknown]
